FAERS Safety Report 5527711-9 (Version None)
Quarter: 2007Q4

REPORT INFORMATION
  Report Type: 
  Country: None (occurrence: None)
  Receive Date: 20071123
  Receipt Date: 20071113
  Transmission Date: 20080405
  Serious: Yes (Hospitalization)
  Sender: FDA-Public Use
  Company Number: 20074275

PATIENT
  Sex: Male

DRUGS (1)
  1. LIORESAL [Suspect]
     Indication: MUSCLE SPASTICITY
     Dosage: MCG, DAILY, INTRATHECAL
     Route: 037

REACTIONS (6)
  - BLOOD PRESSURE DECREASED [None]
  - CONVULSION [None]
  - INSOMNIA [None]
  - PALLOR [None]
  - SOMNOLENCE [None]
  - SPEECH DISORDER [None]
